FAERS Safety Report 5784615-4 (Version None)
Quarter: 2008Q2

REPORT INFORMATION
  Report Type: 
  Country: None (occurrence: None)
  Receive Date: 20080605
  Receipt Date: 20080410
  Transmission Date: 20081010
  Serious: No
  Sender: FDA-Public Use
  Company Number: A0722034A

PATIENT
  Age: 28 Year
  Sex: Female
  Weight: 55 kg

DRUGS (3)
  1. ALLI [Suspect]
     Dates: start: 20080310, end: 20080321
  2. GNC MULTIVITAMIN [Concomitant]
  3. COD LIVER OIL [Concomitant]

REACTIONS (5)
  - ABDOMINAL DISTENSION [None]
  - DIZZINESS [None]
  - MENSTRUATION DELAYED [None]
  - NAUSEA [None]
  - PAROSMIA [None]
